FAERS Safety Report 7102637-8 (Version None)
Quarter: 2010Q4

REPORT INFORMATION
  Report Type: 
  Country: None (occurrence: None)
  Receive Date: 20101115
  Receipt Date: 20101105
  Transmission Date: 20110411
  Serious: Yes (Hospitalization)
  Sender: FDA-Public Use
  Company Number: B0684390A

PATIENT
  Sex: Male

DRUGS (7)
  1. CARVEDILOL [Suspect]
     Indication: SUICIDE ATTEMPT
     Dosage: 1000MG PER DAY
     Route: 048
     Dates: start: 20101031, end: 20101031
  2. ALLOPURINOL [Suspect]
     Indication: SUICIDE ATTEMPT
     Dosage: 12000MG PER DAY
     Route: 048
  3. TORSEMIDE [Suspect]
     Indication: SUICIDE ATTEMPT
     Dosage: 320MG PER DAY
     Route: 048
     Dates: start: 20101031, end: 20101031
  4. ASPIRIN [Suspect]
     Indication: SUICIDE ATTEMPT
     Dosage: 2500MG PER DAY
     Route: 048
     Dates: start: 20101031, end: 20101031
  5. PROCORALAN [Suspect]
     Indication: SUICIDE ATTEMPT
     Dosage: 70MG PER DAY
     Route: 048
     Dates: start: 20101031, end: 20101031
  6. EZETIMIBE/SIMVASTATIN [Suspect]
     Indication: SUICIDE ATTEMPT
     Dosage: 10TAB PER DAY
     Route: 048
     Dates: start: 20101031, end: 20101031
  7. ALCOHOL [Suspect]
     Indication: PRODUCT USED FOR UNKNOWN INDICATION
     Route: 065

REACTIONS (3)
  - INTENTIONAL OVERDOSE [None]
  - MULTIPLE DRUG OVERDOSE INTENTIONAL [None]
  - SUICIDE ATTEMPT [None]
